FAERS Safety Report 6493331-5 (Version None)
Quarter: 2009Q4

REPORT INFORMATION
  Report Type: 
  Country: None (occurrence: None)
  Receive Date: 20091211
  Receipt Date: 20091211
  Transmission Date: 20100525
  Serious: No
  Sender: FDA-Public Use
  Company Number: None

PATIENT
  Age: 76 Year
  Sex: Female
  Weight: 59.8748 kg

DRUGS (1)
  1. COLD REMEDY RAPIDMELTS WITH VITAMIN C + ECHINACES [Suspect]
     Dosage: QID
     Dates: start: 20091116

REACTIONS (1)
  - AGEUSIA [None]
